FAERS Safety Report 24385997 (Version 1)
Quarter: 2024Q4

REPORT INFORMATION
  Report Type: Spontaneous
  Country: US (occurrence: None)
  Receive Date: 20241001
  Receipt Date: 20241001
  Transmission Date: 20250115
  Serious: Yes (Life-Threatening, Disabling)
  Sender: Public
  Company Number: None

PATIENT
  Age: 48 Year
  Sex: Female

DRUGS (1)
  1. WARFARIN SODIUM [Suspect]
     Active Substance: WARFARIN SODIUM
     Indication: Thrombosis prophylaxis
     Dosage: 1 TABLET DAILY ORAL
     Route: 048
     Dates: start: 20240902

REACTIONS (8)
  - Hypersensitivity [None]
  - Periorbital swelling [None]
  - Hyperhidrosis [None]
  - Swelling face [None]
  - Pruritus [None]
  - Alopecia [None]
  - Abdominal distension [None]
  - Sleep deficit [None]

NARRATIVE: CASE EVENT DATE: 20240902
